FAERS Safety Report 5454992-2 (Version None)
Quarter: 2007Q3

REPORT INFORMATION
  Report Type: 
  Country: None (occurrence: None)
  Receive Date: 20070913
  Receipt Date: 20070906
  Transmission Date: 20080115
  Serious: Yes (Other)
  Sender: FDA-Public Use
  Company Number: 2007SP017886

PATIENT
  Sex: Female

DRUGS (3)
  1. NOXAFIL [Suspect]
     Indication: BRONCHOPULMONARY ASPERGILLOSIS
     Dates: start: 20070116, end: 20070226
  2. VINCRISTINE [Concomitant]
  3. ITRACONAZOLE [Concomitant]

REACTIONS (3)
  - NEUROTOXICITY [None]
  - PAIN [None]
  - TREMOR [None]
